FAERS Safety Report 23518035 (Version 1)
Quarter: 2024Q1

REPORT INFORMATION
  Report Type: Report from Study
  Country: US (occurrence: US)
  Receive Date: 20240213
  Receipt Date: 20240213
  Transmission Date: 20240409
  Serious: Yes (Other)
  Sender: FDA-Public Use
  Company Number: US-JNJFOC-20240218265

PATIENT
  Sex: Female

DRUGS (2)
  1. SPRAVATO [Suspect]
     Active Substance: ESKETAMINE
     Indication: Depression
  2. LYRICA [Suspect]
     Active Substance: PREGABALIN
     Indication: Product used for unknown indication
     Route: 065

REACTIONS (2)
  - Mental impairment [Unknown]
  - Adverse event [Unknown]
